FAERS Safety Report 8555725-3 (Version None)
Quarter: 2012Q3

REPORT INFORMATION
  Report Type: 
  Country: None (occurrence: None)
  Receive Date: 20120801
  Receipt Date: 20120723
  Transmission Date: 20120928
  Serious: Yes (Hospitalization)
  Sender: FDA-Public Use
  Company Number: US-009507513-1207USA011419

PATIENT

DRUGS (1)
  1. ZOCOR [Suspect]
     Route: 048

REACTIONS (12)
  - PROCEDURAL PAIN [None]
  - LIVER FUNCTION TEST ABNORMAL [None]
  - SEPSIS [None]
  - PAIN [None]
  - COMPARTMENT SYNDROME [None]
  - HYPERKALAEMIA [None]
  - MENTAL STATUS CHANGES [None]
  - TOXICITY TO VARIOUS AGENTS [None]
  - ERYTHEMA [None]
  - MUSCULOSKELETAL DISORDER [None]
  - OEDEMA [None]
  - RENAL FAILURE [None]
